FAERS Safety Report 20576873 (Version 2)
Quarter: 2022Q4

REPORT INFORMATION
  Report Type: Spontaneous
  Country: US (occurrence: US)
  Receive Date: 20220310
  Receipt Date: 20221025
  Transmission Date: 20230112
  Serious: No
  Sender: FDA-Public Use
  Company Number: US-BRISTOL-MYERS SQUIBB COMPANY-BMS-2022-035674

PATIENT
  Age: 50 Year
  Sex: Female

DRUGS (3)
  1. ORENCIA [Suspect]
     Active Substance: ABATACEPT
     Indication: Rheumatoid arthritis
     Route: 058
     Dates: start: 20200505
  2. ORENCIA [Suspect]
     Active Substance: ABATACEPT
     Indication: Fibromyalgia
     Dosage: \
     Route: 058
     Dates: start: 202005
  3. ORENCIA [Suspect]
     Active Substance: ABATACEPT
     Indication: Rheumatoid arthritis

REACTIONS (6)
  - Joint swelling [Unknown]
  - Rash papular [Unknown]
  - Arthralgia [Unknown]
  - Pain assessment [Unknown]
  - Headache [Unknown]
  - Dizziness [Unknown]
